FAERS Safety Report 18490247 (Version 2)
Quarter: 2020Q4

REPORT INFORMATION
  Report Type: Report from Study
  Country: None (occurrence: US)
  Receive Date: 20201111
  Receipt Date: 20201117
  Transmission Date: 20210114
  Serious: Yes (Other)
  Sender: FDA-Public Use
  Company Number: US-ABBVIE-20K-163-3640142-00

PATIENT
  Age: 43 Year
  Sex: Female

DRUGS (2)
  1. HUMIRA [Suspect]
     Active Substance: ADALIMUMAB
     Indication: PSORIATIC ARTHROPATHY
     Route: 058
     Dates: start: 201711, end: 201811
  2. HUMIRA [Suspect]
     Active Substance: ADALIMUMAB
     Indication: UVEITIS
     Route: 058
     Dates: start: 202009

REACTIONS (6)
  - Uveitis [Unknown]
  - Liposuction [Unknown]
  - Bone pain [Recovering/Resolving]
  - Infection [Recovered/Resolved]
  - Plastic surgery [Unknown]
  - Arthritis [Unknown]

NARRATIVE: CASE EVENT DATE: 201811
